FAERS Safety Report 23696986 (Version 4)
Quarter: 2024Q4

REPORT INFORMATION
  Report Type: Spontaneous
  Country: US (occurrence: US)
  Receive Date: 20240402
  Receipt Date: 20241125
  Transmission Date: 20250115
  Serious: Yes (Hospitalization)
  Sender: DAIICHI
  Company Number: US-DAIICHI SANKYO, INC.-DSU-2024-114648AA

PATIENT
  Sex: Female

DRUGS (2)
  1. VANFLYTA [Suspect]
     Active Substance: QUIZARTINIB DIHYDROCHLORIDE
     Indication: Acute myeloid leukaemia
     Dosage: 17.7 MG, BID
     Route: 048
     Dates: start: 20231013
  2. VANFLYTA [Suspect]
     Active Substance: QUIZARTINIB DIHYDROCHLORIDE
     Dosage: 1 TABLET, QD
     Route: 048

REACTIONS (3)
  - Pericardial effusion [Not Recovered/Not Resolved]
  - Pain [Not Recovered/Not Resolved]
  - Stem cell transplant [Not Recovered/Not Resolved]
